FAERS Safety Report 9078396 (Version 1)
Quarter: 2013Q1

REPORT INFORMATION
  Report Type: Report from Study
  Country: US (occurrence: US)
  Receive Date: 20130130
  Receipt Date: 20130130
  Transmission Date: 20140127
  Serious: No
  Sender: FDA-Public Use
  Company Number: US-ABBOTT-12P-163-0958933-00

PATIENT
  Age: 23 Year
  Sex: Female

DRUGS (2)
  1. HUMIRA 40 MG/0.8 ML PEN [Suspect]
     Indication: PSORIATIC ARTHROPATHY
     Dosage: EVERY 2-3 WEEKS
     Dates: start: 201204
  2. PREDNISONE [Concomitant]
     Indication: PAIN

REACTIONS (5)
  - Injection site mass [Unknown]
  - Injection site haemorrhage [Recovered/Resolved]
  - Inappropriate schedule of drug administration [Unknown]
  - Muscular weakness [Unknown]
  - Injection site pain [Unknown]
